FAERS Safety Report 9629990 (Version 1)
Quarter: 2013Q4

REPORT INFORMATION
  Report Type: Spontaneous
  Country: HU (occurrence: HU)
  Receive Date: 20131017
  Receipt Date: 20131017
  Transmission Date: 20140711
  Serious: Yes (Other)
  Sender: FDA-Public Use
  Company Number: HU-ACTAVIS-2013-17975

PATIENT
  Age: 74 Year
  Sex: Female
  Weight: 76 kg

DRUGS (3)
  1. GLICLAZIDE [Suspect]
     Indication: TYPE 2 DIABETES MELLITUS
     Dosage: 120 MG, DAILY
     Route: 065
  2. GLICLAZIDE [Suspect]
     Dosage: 30 MG, DAILY GRADUALLY INCREASED TO 120MG DAILY
     Route: 065
  3. METFORMIN (UNKNOWN) [Suspect]
     Indication: TYPE 2 DIABETES MELLITUS
     Dosage: 850 MG, BID
     Route: 065

REACTIONS (3)
  - Hypoglycaemia [Recovered/Resolved]
  - Weight increased [Recovering/Resolving]
  - Angina pectoris [Unknown]
